FAERS Safety Report 7267790-4 (Version None)
Quarter: 2011Q1

REPORT INFORMATION
  Report Type: 
  Country: None (occurrence: None)
  Receive Date: 20110201
  Receipt Date: 20110126
  Transmission Date: 20110831
  Serious: Yes (Other)
  Sender: FDA-Public Use
  Company Number: A0907830A

PATIENT
  Sex: Female
  Weight: 63.6 kg

DRUGS (2)
  1. ADVAIR [Suspect]
     Indication: ASTHMA
     Dosage: 2PUFF TWICE PER DAY
     Route: 055
     Dates: start: 20101214
  2. VENTOLIN [Concomitant]
     Dosage: 4PUFF PER DAY
     Route: 055
     Dates: start: 20101214

REACTIONS (6)
  - WHEEZING [None]
  - ILL-DEFINED DISORDER [None]
  - PULMONARY CONGESTION [None]
  - ASTHMA [None]
  - PRODUCT QUALITY ISSUE [None]
  - DYSPNOEA [None]
